FAERS Safety Report 16644245 (Version 4)
Quarter: 2019Q3

REPORT INFORMATION
  Report Type: Report from Study
  Country: JP (occurrence: JP)
  Receive Date: 20190729
  Receipt Date: 20190815
  Transmission Date: 20191004
  Serious: Yes (Hospitalization, Other)
  Sender: FDA-Public Use
  Company Number: JP-BRISTOL-MYERS SQUIBB COMPANY-BMS-2019-074202

PATIENT
  Age: 58 Year
  Sex: Female
  Weight: 40.6 kg

DRUGS (9)
  1. CELECOX [Concomitant]
     Active Substance: CELECOXIB
     Indication: LUNG NEOPLASM MALIGNANT
     Dosage: 100 MG, Q12H
     Route: 048
  2. METOCLOPRAMIDE [METOCLOPRAMIDE HYDROCHLORIDE] [Concomitant]
     Active Substance: METOCLOPRAMIDE HYDROCHLORIDE
     Indication: NAUSEA
     Dosage: 5 MILLIGRAM, PRN
     Route: 048
  3. METFORMIN HYDROCHLORIDE. [Concomitant]
     Active Substance: METFORMIN HYDROCHLORIDE
     Indication: LUNG NEOPLASM MALIGNANT
     Dosage: 1500 MILLIGRAM, Q8H, AFTER EACH MEAL
     Route: 065
     Dates: start: 20190711, end: 20190714
  4. METFORMIN HYDROCHLORIDE. [Concomitant]
     Active Substance: METFORMIN HYDROCHLORIDE
     Indication: PRODUCT USED FOR UNKNOWN INDICATION
     Dosage: 500 MILLIGRAM, Q8H
     Route: 065
     Dates: start: 20190711, end: 20190714
  5. BUSCOPAN [Concomitant]
     Active Substance: BUTYLSCOPOLAMINE BROMIDE
     Indication: ABDOMINAL PAIN
     Dosage: 10 MILLIGRAM, PRN
     Route: 048
  6. GLYCEOL [Concomitant]
     Active Substance: GLYCERIN
     Indication: LUNG NEOPLASM MALIGNANT
     Dosage: 200 ML, Q12H
     Route: 042
     Dates: start: 20190717, end: 20190726
  7. NIVOLUMAB [Suspect]
     Active Substance: NIVOLUMAB
     Indication: LUNG NEOPLASM MALIGNANT
     Dosage: 3 MILLIGRAM/KILOGRAM, Q2WK
     Route: 042
     Dates: start: 20190711, end: 20190711
  8. DEXART [Concomitant]
     Active Substance: DEXAMETHASONE SODIUM PHOSPHATE
     Indication: LUNG NEOPLASM MALIGNANT
     Dosage: 6.6 MG, Q12H
     Route: 042
     Dates: start: 20190717, end: 20190726
  9. MS ONSHIPPU [Concomitant]
     Active Substance: CAMPHOR\CAPSICUM\METHYL SALICYLATE
     Indication: MYALGIA
     Dosage: 1 DOSAGE FORM= 1 SHEET, PRN
     Route: 003

REACTIONS (2)
  - Metastases to central nervous system [Unknown]
  - Pneumonia [Recovered/Resolved]

NARRATIVE: CASE EVENT DATE: 20190716
